FAERS Safety Report 18014391 (Version 1)
Quarter: 2020Q3

REPORT INFORMATION
  Report Type: Spontaneous
  Country: DE (occurrence: DE)
  Receive Date: 20200713
  Receipt Date: 20200713
  Transmission Date: 20201103
  Serious: Yes (Hospitalization)
  Sender: FDA-Public Use
  Company Number: DE-MICRO LABS LIMITED-ML2020-02045

PATIENT
  Age: 68 Year
  Sex: Male

DRUGS (14)
  1. VITAMIN B COMPLEX [Concomitant]
     Active Substance: CYANOCOBALAMIN\DEXPANTHENOL\NIACINAMIDE\PYRIDOXINE HYDROCHLORIDE\RIBOFLAVIN 5^-PHOSPHATE SODIUM\THIAMINE HYDROCHLORIDE\VITAMIN B COMPLEX
     Dosage: NK MG, 1?0?0?0
  2. APIXABAN [Suspect]
     Active Substance: APIXABAN
     Dosage: 10 MG, 1?0?1?0
  3. PANTOPRAZOLE [Suspect]
     Active Substance: PANTOPRAZOLE
     Dosage: 40 MG, 1?0?0?0
  4. EPIPEVISONE [Concomitant]
     Dosage: 10/1 MG, NK, OINTMENT
  5. COLECALCIFEROL (VITAMIN D) [Concomitant]
     Dosage: NK MG, 1?0?0?0
  6. SOLEDUM [Concomitant]
     Active Substance: EUCALYPTOL
     Dosage: NK MG, 1?0?0?0, CAPSULES
  7. RAMIPRIL. [Concomitant]
     Active Substance: RAMIPRIL
     Dosage: 5 MG, 1?0?0?0
  8. METHOTREXAT [Suspect]
     Active Substance: METHOTREXATE
     Dosage: 15 MG/WEEK, 1X
  9. MAGNESIUM VERLA [Concomitant]
     Active Substance: MAGNESIUM
     Dosage: NK MG, 1?0?0?0
  10. EISEN III [Concomitant]
     Dosage: 35 MG, 1?0?0?0
  11. PROSTAGUTT FORTE [Concomitant]
     Active Substance: HERBALS
     Dosage: 80/60 MG, 1?0?0?0
  12. TAMSULOSIN [Concomitant]
     Active Substance: TAMSULOSIN
     Dosage: 0.4 MG, 1?0?0?0
  13. TRIAMTEREN [Concomitant]
     Active Substance: TRIAMTERENE
     Dosage: 10 MG, 1?0?0?0
  14. FOLSAURE [Concomitant]
     Active Substance: FOLIC ACID
     Dosage: 5 MG / WEEK, 1X

REACTIONS (2)
  - Dyspnoea [Unknown]
  - Chest pain [Unknown]
